FAERS Safety Report 9416485 (Version 1)
Quarter: 2013Q3

REPORT INFORMATION
  Report Type: Spontaneous
  Country: IE (occurrence: IE)
  Receive Date: 20130719
  Receipt Date: 20130719
  Transmission Date: 20140515
  Serious: Yes (Other)
  Sender: FDA-Public Use
  Company Number: 2013P1012062

PATIENT
  Age: 1 Day
  Sex: 0

DRUGS (4)
  1. METOPROLOL [Suspect]
     Indication: ANXIETY
     Route: 064
  2. BUPAVICAINE [Concomitant]
  3. FENTANYL [Concomitant]
  4. MORPHINE [Concomitant]

REACTIONS (4)
  - Foetal exposure during pregnancy [None]
  - Caesarean section [None]
  - Endotracheal intubation [None]
  - Resuscitation [None]
